FAERS Safety Report 9529722 (Version 1)
Quarter: 2013Q3

REPORT INFORMATION
  Report Type: Spontaneous
  Country: US (occurrence: US)
  Receive Date: 20130917
  Receipt Date: 20130917
  Transmission Date: 20140515
  Serious: Yes (Other)
  Sender: FDA-Public Use
  Company Number: US-SANOFI-AVENTIS-2013SA076777

PATIENT
  Age: 43 Year
  Sex: Female

DRUGS (1)
  1. DDAVP [Suspect]
     Indication: DIABETES INSIPIDUS
     Route: 048

REACTIONS (4)
  - Hyponatraemia [Unknown]
  - Polyuria [Unknown]
  - Drug ineffective [Unknown]
  - Incorrect product storage [Unknown]
